FAERS Safety Report 5646967-5 (Version None)
Quarter: 2008Q1

REPORT INFORMATION
  Report Type: 
  Country: None (occurrence: None)
  Receive Date: 20080303
  Receipt Date: 20080225
  Transmission Date: 20080703
  Serious: Yes (Other)
  Sender: FDA-Public Use
  Company Number: A0712996A

PATIENT
  Age: 34 Year
  Sex: Female

DRUGS (2)
  1. LAMICTAL [Suspect]
     Indication: EPILEPSY
     Dosage: 600MG SINGLE DOSE
     Route: 048
  2. NO CONCURRENT MEDICATIONS [Concomitant]

REACTIONS (1)
  - ABORTION SPONTANEOUS [None]
